FAERS Safety Report 25467673 (Version 1)
Quarter: 2025Q2

REPORT INFORMATION
  Report Type: Spontaneous
  Country: US (occurrence: None)
  Receive Date: 20250620
  Receipt Date: 20250620
  Transmission Date: 20250716
  Serious: Yes (Death)
  Sender: FDA-CTU
  Company Number: None

PATIENT
  Age: 41 Year
  Sex: Male
  Weight: 67.6 kg

DRUGS (5)
  1. BUPROPION [Suspect]
     Active Substance: BUPROPION
     Indication: Depression
     Dosage: FREQUENCY : DAILY;?
     Route: 048
     Dates: start: 20250527
  2. BUPROPION [Suspect]
     Active Substance: BUPROPION
     Indication: Nicotine dependence
  3. INVEGA SUSTENNA [Concomitant]
     Active Substance: PALIPERIDONE PALMITATE
  4. TRAZODONE [Concomitant]
     Active Substance: TRAZODONE HYDROCHLORIDE
  5. Nicotine Patches 21 mg/24 hour [Concomitant]

REACTIONS (3)
  - Completed suicide [None]
  - Schizophrenia [None]
  - Hallucination, auditory [None]

NARRATIVE: CASE EVENT DATE: 20250608
